FAERS Safety Report 16186432 (Version 1)
Quarter: 2019Q2

REPORT INFORMATION
  Report Type: Spontaneous
  Country: SK (occurrence: SK)
  Receive Date: 20190411
  Receipt Date: 20190411
  Transmission Date: 20190711
  Serious: Yes (Other)
  Sender: FDA-Public Use
  Company Number: SK-PFIZER INC-2019152831

PATIENT
  Sex: Male

DRUGS (6)
  1. RIZATRIPTAN BENZOATE. [Suspect]
     Active Substance: RIZATRIPTAN BENZOATE
     Indication: MIGRAINE
     Dosage: UNK
  2. SUMATRIPTAN. [Suspect]
     Active Substance: SUMATRIPTAN
     Indication: MIGRAINE
     Dosage: UNK
  3. TOPIRAMATE. [Suspect]
     Active Substance: TOPIRAMATE
     Indication: MIGRAINE
     Dosage: UNK
  4. VALPROATE SODIUM. [Suspect]
     Active Substance: VALPROATE SODIUM
     Indication: MIGRAINE
     Dosage: UNK
  5. ERGOTAMIN [ERGOTAMINE TARTRATE] [Suspect]
     Active Substance: ERGOTAMINE TARTRATE
     Indication: MIGRAINE
     Dosage: UNK
  6. ELETRIPTAN HBR [Suspect]
     Active Substance: ELETRIPTAN HYDROBROMIDE
     Indication: MIGRAINE
     Dosage: UNK

REACTIONS (4)
  - Therapeutic product effect incomplete [Unknown]
  - Drug dependence [Unknown]
  - Migraine [Unknown]
  - Product use in unapproved indication [Unknown]
